FAERS Safety Report 24789994 (Version 1)
Quarter: 2024Q4

REPORT INFORMATION
  Report Type: Report from Study
  Country: NL (occurrence: NL)
  Receive Date: 20241230
  Receipt Date: 20241230
  Transmission Date: 20250114
  Serious: Yes (Death, Other)
  Sender: MERZ
  Company Number: NL-MERZ PHARMACEUTICALS, LLC-ACO_178630_2024

PATIENT

DRUGS (1)
  1. DALFAMPRIDINE [Suspect]
     Active Substance: DALFAMPRIDINE
     Indication: Multiple sclerosis
     Dosage: 10 MILLIGRAM, BID
     Route: 048
     Dates: start: 20191114, end: 20240915

REACTIONS (1)
  - Death [Fatal]

NARRATIVE: CASE EVENT DATE: 20240915
